FAERS Safety Report 22210969 (Version 2)
Quarter: 2023Q2

REPORT INFORMATION
  Report Type: Spontaneous
  Country: US (occurrence: US)
  Receive Date: 20230414
  Receipt Date: 20230519
  Transmission Date: 20230722
  Serious: No
  Sender: FDA-Public Use
  Company Number: US-Vifor (International) Inc.-VIT-2023-02287

PATIENT
  Age: 86 Year
  Sex: Male
  Weight: 100.9 kg

DRUGS (5)
  1. MIRCERA [Suspect]
     Active Substance: METHOXY POLYETHYLENE GLYCOL-EPOETIN BETA
     Indication: Product used for unknown indication
     Dosage: FIRST DOSE
     Dates: start: 20230324, end: 20230324
  2. HYDRALAZINE [Concomitant]
     Active Substance: HYDRALAZINE HYDROCHLORIDE
     Dosage: TAKE 1/2 TABLET BY MOUTH THREE TIMES A DAY AS NEEDED SYSTOLIC BLOOD PRESSURE (SBP) GREATER THAN 140
     Route: 048
  3. LEVOFLOXACIN [Concomitant]
     Active Substance: LEVOFLOXACIN
     Dosage: AS DIRECTED EVERY OTHER MONTH
  4. LOVASTATIN [Concomitant]
     Active Substance: LOVASTATIN
     Dosage: 1 TABLET BY MOUTH EVERY NIGHT
     Route: 048
  5. TAMSULOSIN [Concomitant]
     Active Substance: TAMSULOSIN
     Dosage: 1 CAPSULE BY MOUTH EVERY NIGHT
     Route: 048

REACTIONS (2)
  - Drug hypersensitivity [Recovered/Resolved]
  - Pruritus [Recovered/Resolved]

NARRATIVE: CASE EVENT DATE: 20230324
